FAERS Safety Report 14463682 (Version 1)
Quarter: 2018Q1

REPORT INFORMATION
  Report Type: Spontaneous
  Country: IN (occurrence: IN)
  Receive Date: 20180130
  Receipt Date: 20180130
  Transmission Date: 20180509
  Serious: Yes (Other)
  Sender: FDA-Public Use
  Company Number: IN-GLAXOSMITHKLINE-IN2018015234

PATIENT
  Age: 5 Day
  Sex: Male

DRUGS (5)
  1. TOBRAMYCIN. [Concomitant]
     Active Substance: TOBRAMYCIN
     Indication: ANTIBIOTIC PROPHYLAXIS
     Dosage: 4 TIMES PER DAY
     Route: 061
  2. ACITRETIN. [Suspect]
     Active Substance: ACITRETIN
     Indication: ECTROPION
     Dosage: 1 MG/KG, QD
     Route: 048
  3. ACITRETIN. [Suspect]
     Active Substance: ACITRETIN
     Indication: ICHTHYOSIS
  4. TOBRAMYCIN. [Concomitant]
     Active Substance: TOBRAMYCIN
     Indication: ANTIBIOTIC PROPHYLAXIS
     Dosage: 2 TIMES PER DAY
     Route: 061
  5. CARBOXYMETHYLCELLULOSE [Concomitant]
     Active Substance: CARBOXYMETHYLCELLULOSE
     Indication: EYE LUBRICATION THERAPY
     Dosage: UNK
     Route: 061

REACTIONS (1)
  - Hyperaemia [Recovered/Resolved]
